FAERS Safety Report 6730071-9 (Version None)
Quarter: 2010Q2

REPORT INFORMATION
  Report Type: 
  Country: None (occurrence: None)
  Receive Date: 20100513
  Receipt Date: 20100504
  Transmission Date: 20101027
  Serious: Yes (Hospitalization)
  Sender: FDA-Public Use
  Company Number: 2010SP018131

PATIENT
  Age: 62 Year
  Sex: Male

DRUGS (8)
  1. ASMANEX TWISTHALER [Suspect]
     Indication: DYSPNOEA
     Dosage: 1 DF;BID;PO
     Route: 048
     Dates: start: 20100312, end: 20100401
  2. DOXAZOSIN MESYLATE [Concomitant]
  3. POTASSIUM [Concomitant]
  4. CARVEDILOL [Concomitant]
  5. SIMVASTATIN [Concomitant]
  6. GLYBURIDE [Concomitant]
  7. PROVENTIL-HFA [Concomitant]
  8. AMLODIPINE [Concomitant]

REACTIONS (3)
  - CARDIAC FAILURE CONGESTIVE [None]
  - INCORRECT DOSE ADMINISTERED [None]
  - PULMONARY OEDEMA [None]
